FAERS Safety Report 12413767 (Version 1)
Quarter: 2016Q2

REPORT INFORMATION
  Report Type: Spontaneous
  Country: US (occurrence: US)
  Receive Date: 20160527
  Receipt Date: 20160527
  Transmission Date: 20160815
  Serious: Yes (Other)
  Sender: FDA-Public Use
  Company Number: US-PFIZER INC-2016274574

PATIENT
  Age: 53 Year
  Sex: Female

DRUGS (10)
  1. GAVISCON [Concomitant]
     Active Substance: ALUMINUM HYDROXIDE\MAGNESIUM CARBONATE
  2. MVI [Concomitant]
     Active Substance: VITAMINS
  3. ADVIL [Concomitant]
     Active Substance: IBUPROFEN
  4. SYNTHROID [Concomitant]
     Active Substance: LEVOTHYROXINE SODIUM
  5. XELJANZ [Suspect]
     Active Substance: TOFACITINIB CITRATE
     Indication: RHEUMATOID ARTHRITIS
     Dosage: 5 MG, TWICE DAILY
     Route: 048
     Dates: start: 20160324
  6. DEXILANT [Concomitant]
     Active Substance: DEXLANSOPRAZOLE
  7. FISH OIL [Concomitant]
     Active Substance: FISH OIL
  8. LEFLUNOMIDE. [Concomitant]
     Active Substance: LEFLUNOMIDE
  9. DORYX [Concomitant]
     Active Substance: DOXYCYCLINE HYCLATE
  10. SUDAFED [Concomitant]
     Active Substance: PSEUDOEPHEDRINE HYDROCHLORIDE

REACTIONS (5)
  - Cyst [Not Recovered/Not Resolved]
  - Urine analysis abnormal [Unknown]
  - Spinal cord compression [Unknown]
  - Chromaturia [Unknown]
  - Pain [Unknown]

NARRATIVE: CASE EVENT DATE: 2016
